FAERS Safety Report 6731193-9 (Version None)
Quarter: 2010Q2

REPORT INFORMATION
  Report Type: 
  Country: None (occurrence: None)
  Receive Date: 20100518
  Receipt Date: 20100505
  Transmission Date: 20101027
  Serious: Yes (Hospitalization)
  Sender: FDA-Public Use
  Company Number: US-ELI_LILLY_AND_COMPANY-US201004003924

PATIENT
  Sex: Female

DRUGS (9)
  1. FORTEO [Suspect]
     Indication: OSTEOPOROSIS
     Dosage: 20 UG, DAILY (1/D)
     Dates: start: 20090901, end: 20100201
  2. FORTEO [Suspect]
     Dosage: 20 UG, DAILY (1/D)
     Dates: start: 20100301
  3. XOPENEX [Concomitant]
  4. PULMICORT [Concomitant]
  5. HYZAAR [Concomitant]
  6. LEXAPRO [Concomitant]
  7. LIPITOR [Concomitant]
  8. NEXIUM [Concomitant]
  9. NEURONTIN                               /SCH/ [Concomitant]

REACTIONS (8)
  - ASTHENIA [None]
  - BRONCHITIS [None]
  - HYPERHIDROSIS [None]
  - IMMUNODEFICIENCY [None]
  - NAUSEA [None]
  - PNEUMONIA [None]
  - TREMOR [None]
  - VISION BLURRED [None]
